FAERS Safety Report 24764353 (Version 2)
Quarter: 2025Q2

REPORT INFORMATION
  Report Type: Spontaneous
  Country: FR (occurrence: FR)
  Receive Date: 20241223
  Receipt Date: 20250402
  Transmission Date: 20250717
  Serious: Yes (Hospitalization, Other)
  Sender: AUROBINDO
  Company Number: FR-AFSSAPS-RS2024001208

PATIENT
  Age: 75 Year
  Sex: Female

DRUGS (2)
  1. MIRTAZAPINE [Suspect]
     Active Substance: MIRTAZAPINE
     Indication: Primary amyloidosis
     Dosage: 15 MILLIGRAM, ONCE A DAY
     Route: 048
     Dates: start: 202309, end: 20241007
  2. DARZALEX [Suspect]
     Active Substance: DARATUMUMAB
     Indication: Primary amyloidosis
     Route: 042
     Dates: start: 202309, end: 20241003

REACTIONS (3)
  - Posterior reversible encephalopathy syndrome [Recovered/Resolved]
  - Head injury [Unknown]
  - Fall [Unknown]

NARRATIVE: CASE EVENT DATE: 20241007
